FAERS Safety Report 8407384-8 (Version None)
Quarter: 2012Q2

REPORT INFORMATION
  Report Type: 
  Country: None (occurrence: None)
  Receive Date: 20120604
  Receipt Date: 20120522
  Transmission Date: 20120825
  Serious: Yes (Other)
  Sender: FDA-Public Use
  Company Number: US-ROCHE-1072111

PATIENT

DRUGS (3)
  1. IRINOTECAN HCL [Suspect]
     Indication: OESOPHAGEAL ADENOCARCINOMA
  2. CISPLATIN [Suspect]
     Indication: OESOPHAGEAL ADENOCARCINOMA
  3. AVASTIN [Suspect]
     Indication: OESOPHAGEAL ADENOCARCINOMA

REACTIONS (8)
  - THROMBOCYTOPENIA [None]
  - VOMITING [None]
  - FEBRILE NEUTROPENIA [None]
  - NEUTROPENIA [None]
  - OESOPHAGITIS [None]
  - PULMONARY EMBOLISM [None]
  - NAUSEA [None]
  - DEHYDRATION [None]
